FAERS Safety Report 18748016 (Version 1)
Quarter: 2021Q1

REPORT INFORMATION
  Report Type: Spontaneous
  Country: DE (occurrence: DE)
  Receive Date: 20210115
  Receipt Date: 20210115
  Transmission Date: 20210419
  Serious: Yes (Other)
  Sender: FDA-Public Use
  Company Number: DE-FRESENIUS KABI-FK202100601

PATIENT
  Age: 9 Year
  Sex: Female

DRUGS (8)
  1. METHYLPREDNISOLONE (MANUFACTURER UNKNOWN) [Suspect]
     Active Substance: METHYLPREDNISOLONE
     Indication: ENCEPHALITIS AUTOIMMUNE
     Route: 065
  2. IMMUNOGLOBULIN HUMAN NORMAL [Concomitant]
     Active Substance: HUMAN IMMUNOGLOBULIN G
     Indication: ENCEPHALITIS AUTOIMMUNE
     Dosage: 1 G/KG
     Route: 042
  3. CLOBAZAM. [Concomitant]
     Active Substance: CLOBAZAM
     Indication: DRUG THERAPY
     Route: 065
  4. CLONIDINE. [Concomitant]
     Active Substance: CLONIDINE
     Indication: DRUG THERAPY
     Route: 065
  5. CHLORAL HYDRATE [Concomitant]
     Active Substance: CHLORAL HYDRATE
     Indication: DRUG THERAPY
     Route: 065
  6. RITUXIMAB. [Suspect]
     Active Substance: RITUXIMAB
     Indication: B-CELL DEPLETION THERAPY
     Route: 042
  7. GABAPENTIN. [Concomitant]
     Active Substance: GABAPENTIN
     Indication: DRUG THERAPY
     Route: 065
  8. PIPAMPERONE [Concomitant]
     Active Substance: PIPAMPERONE
     Indication: PRODUCT USED FOR UNKNOWN INDICATION
     Route: 065

REACTIONS (3)
  - Hypotension [Recovered/Resolved]
  - Sepsis [Recovered/Resolved]
  - Off label use [Recovered/Resolved]
